FAERS Safety Report 5697908-6 (Version None)
Quarter: 2008Q2

REPORT INFORMATION
  Report Type: 
  Country: None (occurrence: None)
  Receive Date: 20080404
  Receipt Date: 20080404
  Transmission Date: 20081010
  Serious: No
  Sender: FDA-Public Use
  Company Number: None

PATIENT
  Age: 61 Year
  Sex: Male
  Weight: 82.55 kg

DRUGS (1)
  1. ETODOLAC [Suspect]
     Indication: PAIN
     Dosage: 300MG TID PO
     Route: 048
     Dates: start: 20020212, end: 20040929

REACTIONS (5)
  - GASTRIC HAEMORRHAGE [None]
  - GASTRIC ULCER [None]
  - HAEMORRHAGE [None]
  - HELICOBACTER INFECTION [None]
  - HIATUS HERNIA [None]
